FAERS Safety Report 24783896 (Version 2)
Quarter: 2024Q4

REPORT INFORMATION
  Report Type: Spontaneous
  Country: FR (occurrence: FR)
  Receive Date: 20241227
  Receipt Date: 20241227
  Transmission Date: 20250115
  Serious: Yes (Other)
  Sender: BIOGEN
  Company Number: FR-BIOGEN-2024BI01295006

PATIENT
  Sex: Female

DRUGS (2)
  1. TECFIDERA [Interacting]
     Active Substance: DIMETHYL FUMARATE
     Indication: Multiple sclerosis
     Route: 050
     Dates: start: 2012
  2. TAGRISSO [Interacting]
     Active Substance: OSIMERTINIB
     Indication: Lung neoplasm malignant
     Route: 050

REACTIONS (4)
  - Lung neoplasm malignant [Unknown]
  - Product use issue [Unknown]
  - Multiple sclerosis [Unknown]
  - Depression [Unknown]
